FAERS Safety Report 22198033 (Version 2)
Quarter: 2023Q2

REPORT INFORMATION
  Report Type: Spontaneous
  Country: US (occurrence: US)
  Receive Date: 20230411
  Receipt Date: 20230414
  Transmission Date: 20230722
  Serious: No
  Sender: FDA-Public Use
  Company Number: US-PFIZER INC-202300145998

PATIENT
  Age: 51 Year
  Sex: Female
  Weight: 68.04 kg

DRUGS (6)
  1. PREMARIN [Suspect]
     Active Substance: ESTROGENS, CONJUGATED
     Indication: Menopause
     Dosage: UNK
  2. PREMARIN [Suspect]
     Active Substance: ESTROGENS, CONJUGATED
     Indication: Night sweats
  3. PREMARIN [Suspect]
     Active Substance: ESTROGENS, CONJUGATED
     Indication: Hot flush
  4. LYRICA [Concomitant]
     Active Substance: PREGABALIN
  5. HERBALS\WITHANIA SOMNIFERA ROOT [Concomitant]
     Active Substance: HERBALS\WITHANIA SOMNIFERA ROOT
     Dosage: UNK, 2X/DAY,RECEIVED 60 TABLETS
  6. BLACK COHOSH EXTRACT [Concomitant]
     Dosage: 40 MG, 2X/DAY [TAKES ONE IN THE MORNING AND ONE AT NIGHT]. RECEIVED 100 TABLETS

REACTIONS (2)
  - Intentional product misuse [Unknown]
  - Therapeutic product effect incomplete [Unknown]
